FAERS Safety Report 10211750 (Version 1)
Quarter: 2014Q2

REPORT INFORMATION
  Report Type: Spontaneous
  Country: CA (occurrence: None)
  Receive Date: 20140528
  Receipt Date: 20140528
  Transmission Date: 20141212
  Serious: Yes (Other)
  Sender: FDA-Public Use
  Company Number: 2014CA004179

PATIENT
  Sex: Male

DRUGS (1)
  1. ELIGARD [Suspect]
     Indication: PROSTATE CANCER
     Dosage: 30 MG/4 MONTHS, UNKNOWN
     Dates: start: 20061012

REACTIONS (1)
  - Metastatic neoplasm [None]
